FAERS Safety Report 8843632 (Version 1)
Quarter: 2012Q4

REPORT INFORMATION
  Report Type: 
  Country: US (occurrence: US)
  Receive Date: 20121016
  Receipt Date: 20121016
  Transmission Date: 20130627
  Serious: Yes (Hospitalization, Other)
  Sender: FDA-Public Use
  Company Number: US-ROCHE-1143129

PATIENT
  Sex: Female
  Weight: 25.3 kg

DRUGS (12)
  1. NUTROPIN AQ [Suspect]
     Indication: BODY HEIGHT BELOW NORMAL
     Route: 058
  2. CELLCEPT [Suspect]
     Indication: PRODUCT USED FOR UNKNOWN INDICATION
     Route: 065
  3. NORVASC [Concomitant]
  4. KAOPECTATE [Concomitant]
  5. SODIUM BICARBONATE [Concomitant]
  6. PEN VK [Concomitant]
  7. ACYCLOVIR [Concomitant]
  8. PREDNISONE [Concomitant]
  9. AMITRIPTYLINE [Concomitant]
  10. PROGRAF [Concomitant]
  11. CALCIUM CARBONATE [Concomitant]
  12. PEDIASURE [Concomitant]

REACTIONS (2)
  - Liver transplant rejection [Unknown]
  - Immune system disorder [Unknown]
